FAERS Safety Report 22052673 (Version 2)
Quarter: 2023Q1

REPORT INFORMATION
  Report Type: Other
  Country: US (occurrence: None)
  Receive Date: 20230302
  Receipt Date: 20230306
  Transmission Date: 20230417
  Serious: No
  Sender: FDA-Public Use
  Company Number: US-ROCHE-3297967

PATIENT
  Age: 30 Year
  Sex: Female
  Weight: 59.928 kg

DRUGS (17)
  1. OCREVUS [Suspect]
     Active Substance: OCRELIZUMAB
     Indication: Relapsing-remitting multiple sclerosis
     Dosage: 300MG A DAY 1 + DAY 15 THEN 600 MG EVERY 6 MONTHS
     Route: 042
     Dates: start: 20200210
  2. VITAMIN D3 [Concomitant]
     Active Substance: CHOLECALCIFEROL
     Dosage: 125 MCG
  3. ALPRAZOLAM [Concomitant]
     Active Substance: ALPRAZOLAM
     Route: 048
  4. AMANTADINE [Concomitant]
     Active Substance: AMANTADINE
     Route: 048
  5. AMPHETAMINE;DEXTROAMPHETAMINE [Concomitant]
     Route: 048
  6. BUPROPION [Concomitant]
     Active Substance: BUPROPION
     Route: 048
  7. DONEPEZIL [Concomitant]
     Active Substance: DONEPEZIL
     Route: 048
  8. ERENUMAB-AOOE [Concomitant]
     Active Substance: ERENUMAB-AOOE
     Dosage: 70 MG/ML/ AUTO INJECTOR
  9. ESCITALOPRAM [Concomitant]
     Active Substance: ESCITALOPRAM OXALATE
     Route: 048
  10. ESZOPICLONE [Concomitant]
     Active Substance: ESZOPICLONE
     Route: 048
  11. LAMOTRIGINE [Concomitant]
     Active Substance: LAMOTRIGINE
     Route: 048
  12. LISDEXAMFETAMINE [Concomitant]
     Active Substance: LISDEXAMFETAMINE
     Route: 048
  13. MELATONIN [Concomitant]
     Active Substance: MELATONIN
     Route: 048
  14. ACETYLCYSTEINE [Concomitant]
     Active Substance: ACETYLCYSTEINE
  15. PROMETHAZINE [Concomitant]
     Active Substance: PROMETHAZINE HYDROCHLORIDE
     Route: 047
  16. ADEMETIONINE [Concomitant]
     Active Substance: ADEMETIONINE
  17. TRAZODONE [Concomitant]
     Active Substance: TRAZODONE HYDROCHLORIDE
     Route: 048

REACTIONS (4)
  - Myalgia [Unknown]
  - Dyspnoea [Unknown]
  - COVID-19 [Unknown]
  - Palpitations [Unknown]

NARRATIVE: CASE EVENT DATE: 20201124
